FAERS Safety Report 7505538-6 (Version None)
Quarter: 2011Q2

REPORT INFORMATION
  Report Type: 
  Country: None (occurrence: None)
  Receive Date: 20110526
  Receipt Date: 20110524
  Transmission Date: 20111010
  Serious: Yes (Hospitalization, Other)
  Sender: FDA-Public Use
  Company Number: US-ASTRAZENECA-2011SE31678

PATIENT
  Age: 57 Year
  Sex: Male

DRUGS (2)
  1. SEROQUEL [Suspect]
     Indication: THINKING ABNORMAL
     Dosage: 100 TO 600 MG
     Route: 048
     Dates: start: 20040301, end: 20080101
  2. VENLAFAXINE HCL [Concomitant]
     Indication: DEPRESSION
     Dosage: 37.5 TO 74.1
     Route: 048
     Dates: start: 20040426

REACTIONS (8)
  - PROTEINURIA [None]
  - DIABETES MELLITUS [None]
  - GYNAECOMASTIA [None]
  - SKIN ULCER [None]
  - ARTHROPATHY [None]
  - CORONARY ARTERY DISEASE [None]
  - WEIGHT INCREASED [None]
  - ANAEMIA [None]
